FAERS Safety Report 6928756-4 (Version None)
Quarter: 2010Q3

REPORT INFORMATION
  Report Type: 
  Country: None (occurrence: None)
  Receive Date: 20100817
  Receipt Date: 20100805
  Transmission Date: 20110219
  Serious: Yes (Hospitalization, Other)
  Sender: FDA-Public Use
  Company Number: US-WYE-H16776210

PATIENT
  Sex: Female
  Weight: 78.54 kg

DRUGS (10)
  1. EFFEXOR [Suspect]
     Dosage: LOWEST DOSE
     Dates: start: 20060101, end: 20060101
  2. METOPROLOL TARTRATE [Concomitant]
  3. WELLBUTRIN [Suspect]
     Dosage: UNKNOWN
  4. EFFEXOR XR [Suspect]
     Dosage: LOWEST DOSE
     Dates: start: 20060101, end: 20060101
  5. ZOCOR [Concomitant]
     Dosage: 40 MG, FREQUENCY UNKNOWN
  6. KLONOPIN [Concomitant]
     Dosage: UNKNOWN DOSE AS NEEDED
  7. PLAVIX [Concomitant]
  8. ACETYLSALICYLIC ACID SRT [Concomitant]
  9. PANTOPRAZOLE [Concomitant]
  10. MICARDIS [Concomitant]

REACTIONS (10)
  - BRAIN INJURY [None]
  - COGNITIVE DISORDER [None]
  - CORONARY ARTERIAL STENT INSERTION [None]
  - CORONARY ARTERY BYPASS [None]
  - NONSPECIFIC REACTION [None]
  - PSYCHOMOTOR HYPERACTIVITY [None]
  - SINUS DISORDER [None]
  - SINUSITIS [None]
  - TRANSIENT ISCHAEMIC ATTACK [None]
  - VERTIGO [None]
